FAERS Safety Report 7308423-8 (Version None)
Quarter: 2011Q1

REPORT INFORMATION
  Report Type: 
  Country: None (occurrence: None)
  Receive Date: 20110223
  Receipt Date: 20101029
  Transmission Date: 20110831
  Serious: Yes (Other)
  Sender: FDA-Public Use
  Company Number: US-BAYER-201016330NA

PATIENT
  Sex: Female
  Weight: 61.364 kg

DRUGS (4)
  1. YASMIN [Suspect]
     Indication: DYSFUNCTIONAL UTERINE BLEEDING
     Route: 048
     Dates: start: 20020101, end: 20060901
  2. GLUCOSAMINE [Concomitant]
     Indication: ARTHRALGIA
  3. GLUCOSAMINE [Concomitant]
  4. CONTRACEPTIVES NOS [Concomitant]
     Route: 048

REACTIONS (10)
  - AMNESIA [None]
  - PAIN [None]
  - MEMORY IMPAIRMENT [None]
  - APHASIA [None]
  - DISORIENTATION [None]
  - MENTAL DISORDER [None]
  - CEREBROVASCULAR ACCIDENT [None]
  - SPEECH DISORDER [None]
  - INJURY [None]
  - CONFUSIONAL STATE [None]
